FAERS Safety Report 13290536 (Version 1)
Quarter: 2017Q1

REPORT INFORMATION
  Report Type: Spontaneous
  Country: US (occurrence: US)
  Receive Date: 20170303
  Receipt Date: 20170303
  Transmission Date: 20170428
  Serious: Yes (Other)
  Sender: FDA-Public Use
  Company Number: US-ROCHE-1900251

PATIENT
  Sex: Male

DRUGS (2)
  1. XOLAIR [Suspect]
     Active Substance: OMALIZUMAB
     Indication: ASTHMA
     Route: 058
     Dates: start: 20130901
  2. ALAVERT ALLERGY [Concomitant]
     Active Substance: LORATADINE

REACTIONS (4)
  - Burning sensation [Unknown]
  - Cough [Unknown]
  - Pain [Unknown]
  - Pneumonia [Unknown]
